FAERS Safety Report 21958591 (Version 1)
Quarter: 2023Q1

REPORT INFORMATION
  Report Type: Spontaneous
  Country: FR (occurrence: None)
  Receive Date: 20230206
  Receipt Date: 20230206
  Transmission Date: 20230418
  Serious: Yes (Life-Threatening)
  Sender: FDA-Public Use
  Company Number: 2023A028813

PATIENT
  Age: 16 Year
  Sex: Female
  Weight: 85 kg

DRUGS (5)
  1. QUETIAPINE FUMARATE [Suspect]
     Active Substance: QUETIAPINE FUMARATE
     Indication: Intentional overdose
     Dosage: 3 TABLETS OF 50 MG150.0MG ONCE/SINGLE ADMINISTRATION
     Route: 048
     Dates: start: 20210529, end: 20210529
  2. LOPRAZOLAM [Suspect]
     Active Substance: LOPRAZOLAM
     Indication: Intentional overdose
     Dosage: 1 TABLET OF 1 MG1.0MG ONCE/SINGLE ADMINISTRATION
     Route: 048
     Dates: start: 20210529, end: 20210529
  3. SERTRALINE [Suspect]
     Active Substance: SERTRALINE HYDROCHLORIDE
     Indication: Intentional overdose
     Dosage: 3, 25 MG TABLETS75.0MG ONCE/SINGLE ADMINISTRATION
     Route: 048
     Dates: start: 20210529, end: 20210529
  4. NITRAZEPAM [Suspect]
     Active Substance: NITRAZEPAM
     Indication: Intentional overdose
     Dosage: 2, 5 MG TABLETS10.0MG ONCE/SINGLE ADMINISTRATION
     Route: 048
     Dates: start: 20210529, end: 20210529
  5. ALPRAZOLAM [Suspect]
     Active Substance: ALPRAZOLAM
     Indication: Intentional overdose
     Dosage: 1 TABLET OF 0.25 MG0.25MG ONCE/SINGLE ADMINISTRATION
     Route: 048
     Dates: start: 20210529, end: 20210529

REACTIONS (3)
  - Somnolence [Recovered/Resolved]
  - Vertigo [Recovered/Resolved]
  - Intentional overdose [Recovered/Resolved]

NARRATIVE: CASE EVENT DATE: 20210529
